FAERS Safety Report 7595625-9 (Version None)
Quarter: 2011Q3

REPORT INFORMATION
  Report Type: 
  Country: None (occurrence: None)
  Receive Date: 20110707
  Receipt Date: 20110627
  Transmission Date: 20111222
  Serious: Yes (Hospitalization)
  Sender: FDA-Public Use
  Company Number: JP-JNJFOC-20110506331

PATIENT
  Age: 18 Year
  Sex: Male

DRUGS (2)
  1. REMICADE [Suspect]
     Indication: CROHN'S DISEASE
     Route: 042
     Dates: start: 20080401
  2. AZATHIOPRINE SODIUM [Suspect]
     Indication: CROHN'S DISEASE

REACTIONS (1)
  - CYTOMEGALOVIRUS ENTEROCOLITIS [None]
